FAERS Safety Report 7084455-2 (Version None)
Quarter: 2010Q4

REPORT INFORMATION
  Report Type: 
  Country: None (occurrence: None)
  Receive Date: 20101104
  Receipt Date: 20101031
  Transmission Date: 20110411
  Serious: Yes (Other)
  Sender: FDA-Public Use
  Company Number: US-PFIZER INC-2010138343

PATIENT
  Age: 32 Year
  Sex: Male
  Weight: 106.58 kg

DRUGS (1)
  1. VIAGRA [Suspect]
     Indication: ERECTILE DYSFUNCTION
     Dosage: UNK
     Route: 048
     Dates: start: 20100101

REACTIONS (2)
  - ERECTION INCREASED [None]
  - OVERDOSE [None]
